APPROVED DRUG PRODUCT: NORCO
Active Ingredient: ACETAMINOPHEN; HYDROCODONE BITARTRATE
Strength: 325MG;2.5MG
Dosage Form/Route: TABLET;ORAL
Application: A040148 | Product #004
Applicant: ALLERGAN PHARMACEUTICALS INTERNATIONAL LTD
Approved: Jul 7, 2014 | RLD: No | RS: No | Type: DISCN